FAERS Safety Report 25315877 (Version 1)
Quarter: 2025Q2

REPORT INFORMATION
  Report Type: Spontaneous
  Country: FR (occurrence: FR)
  Receive Date: 20250515
  Receipt Date: 20250515
  Transmission Date: 20250716
  Serious: Yes (Disabling)
  Sender: ORGANON
  Company Number: FR-009507513-1412FRA006146

PATIENT
  Age: 67 Year
  Sex: Male

DRUGS (15)
  1. FOSAMAX [Suspect]
     Active Substance: ALENDRONATE SODIUM
     Indication: Rheumatoid arthritis
     Route: 048
  2. FUROSEMIDE [Suspect]
     Active Substance: FUROSEMIDE
     Indication: Rheumatoid arthritis
     Route: 048
  3. PLAQUENIL [Suspect]
     Active Substance: HYDROXYCHLOROQUINE SULFATE
     Indication: Rheumatoid arthritis
     Route: 048
  4. BROMAZEPAM [Suspect]
     Active Substance: BROMAZEPAM
     Indication: Rheumatoid arthritis
     Route: 048
  5. CALCIUM CARBONATE\CHOLECALCIFEROL [Suspect]
     Active Substance: CALCIUM CARBONATE\CHOLECALCIFEROL
     Indication: Rheumatoid arthritis
     Route: 048
  6. RIVOTRIL [Suspect]
     Active Substance: CLONAZEPAM
     Indication: Rheumatoid arthritis
     Route: 048
  7. AVODART [Suspect]
     Active Substance: DUTASTERIDE
     Indication: Rheumatoid arthritis
     Route: 048
  8. CYMBALTA [Suspect]
     Active Substance: DULOXETINE HYDROCHLORIDE
     Indication: Rheumatoid arthritis
     Route: 048
  9. ESOMEPRAZOLE MAGNESIUM [Suspect]
     Active Substance: ESOMEPRAZOLE MAGNESIUM
     Indication: Rheumatoid arthritis
     Route: 048
  10. SALAZOPYRINE [Suspect]
     Active Substance: SULFASALAZINE
     Indication: Rheumatoid arthritis
     Route: 048
  11. TAHOR [Suspect]
     Active Substance: ATORVASTATIN CALCIUM
     Indication: Rheumatoid arthritis
     Route: 048
     Dates: end: 20140731
  12. POLYETHYLENE GLYCOL 4000 [Suspect]
     Active Substance: POLYETHYLENE GLYCOL 4000
     Indication: Rheumatoid arthritis
     Route: 048
  13. SKENAN [Suspect]
     Active Substance: MORPHINE SULFATE
     Indication: Rheumatoid arthritis
     Route: 048
  14. PREDNISONE [Suspect]
     Active Substance: PREDNISONE
     Indication: Rheumatoid arthritis
     Route: 048
  15. METHOTREXATE SODIUM [Suspect]
     Active Substance: METHOTREXATE SODIUM
     Indication: Rheumatoid arthritis
     Route: 058

REACTIONS (2)
  - Peripheral sensorimotor neuropathy [Unknown]
  - Gait disturbance [Unknown]

NARRATIVE: CASE EVENT DATE: 20130901
